FAERS Safety Report 20939982 (Version 1)
Quarter: 2022Q2

REPORT INFORMATION
  Report Type: Spontaneous
  Country: US (occurrence: None)
  Receive Date: 20220609
  Receipt Date: 20220609
  Transmission Date: 20220720
  Serious: Yes (Hospitalization)
  Sender: FDA-Public Use
  Company Number: None

PATIENT
  Sex: Female

DRUGS (1)
  1. TEMOZOLOMIDE [Suspect]
     Active Substance: TEMOZOLOMIDE
     Indication: Soft tissue sarcoma
     Dosage: 250MMG ONCE DAILY ORAL
     Route: 048
     Dates: start: 20220425

REACTIONS (1)
  - Urinary tract infection [None]
